FAERS Safety Report 8570911 (Version 2)
Quarter: 2012Q4

REPORT INFORMATION
  Report Type: 
  Country: IE (occurrence: IE)
  Receive Date: 20120521
  Receipt Date: 20121120
  Transmission Date: 20130627
  Serious: Yes (Hospitalization)
  Sender: FDA-Public Use
  Company Number: IE-BAYER-2012-047953

PATIENT
  Age: 72 Year
  Sex: Male

DRUGS (3)
  1. NEXAVAR [Suspect]
     Indication: THYROID CANCER
     Dosage: 400 mg, BID
     Route: 048
     Dates: start: 20120227, end: 20120514
  2. NEXAVAR [Suspect]
     Indication: THYROID CANCER
     Dosage: 200 mg, BID
     Route: 048
     Dates: start: 2012
  3. INFLUENZA VACCINE [Concomitant]
     Dosage: UNK
     Dates: start: 20121025, end: 20121025

REACTIONS (5)
  - Cough [None]
  - Dehydration [None]
  - Pyrexia [None]
  - Palmar-plantar erythrodysaesthesia syndrome [Recovering/Resolving]
  - Off label use [None]
